FAERS Safety Report 22014012 (Version 2)
Quarter: 2023Q2

REPORT INFORMATION
  Report Type: Spontaneous
  Country: US (occurrence: None)
  Receive Date: 20230221
  Receipt Date: 20230420
  Transmission Date: 20230721
  Serious: No
  Sender: FDA-Public Use
  Company Number: 2023A032236

PATIENT
  Age: 28517 Day
  Sex: Female

DRUGS (1)
  1. BREZTRI [Suspect]
     Active Substance: BUDESONIDE\FORMOTEROL\GLYCOPYRROLATE
     Dosage: UNKNOWN DOSE160.0UG UNKNOWN
     Route: 055
     Dates: start: 202301

REACTIONS (4)
  - Drug ineffective [Unknown]
  - Incorrect dose administered by device [Unknown]
  - Intentional device misuse [Unknown]
  - Device defective [Unknown]

NARRATIVE: CASE EVENT DATE: 20230202
